FAERS Safety Report 10237181 (Version 1)
Quarter: 2014Q2

REPORT INFORMATION
  Report Type: Spontaneous
  Country: US (occurrence: US)
  Receive Date: 20140613
  Receipt Date: 20140613
  Transmission Date: 20141212
  Serious: Yes (Other)
  Sender: FDA-Public Use
  Company Number: US-ABBVIE-14P-163-1246593-00

PATIENT
  Sex: Female
  Weight: 61.29 kg

DRUGS (2)
  1. LUPRON DEPOT [Suspect]
     Indication: ENDOMETRIOSIS
     Dates: start: 2002, end: 2003
  2. LUPRON DEPOT [Suspect]
     Dates: start: 2010, end: 2011

REACTIONS (2)
  - Gestational hypertension [Unknown]
  - Endometriosis [Not Recovered/Not Resolved]
